FAERS Safety Report 7257518-6 (Version None)
Quarter: 2011Q1

REPORT INFORMATION
  Report Type: 
  Country: None (occurrence: None)
  Receive Date: 20110129
  Receipt Date: 20100518
  Transmission Date: 20110831
  Serious: No
  Sender: FDA-Public Use
  Company Number: US-ABBOTT-10P-163-0646711-00

PATIENT
  Sex: Male

DRUGS (4)
  1. METHOTREXATE [Concomitant]
     Indication: PSORIASIS
  2. METHOTREXATE [Concomitant]
     Indication: PSORIATIC ARTHROPATHY
  3. HUMIRA [Suspect]
     Indication: PSORIASIS
     Dates: start: 20090101
  4. HUMIRA [Suspect]
     Indication: PSORIATIC ARTHROPATHY

REACTIONS (1)
  - BLOOD GLUCOSE INCREASED [None]
